FAERS Safety Report 17386616 (Version 3)
Quarter: 2020Q3

REPORT INFORMATION
  Report Type: Spontaneous
  Country: US (occurrence: US)
  Receive Date: 20200206
  Receipt Date: 20200915
  Transmission Date: 20201102
  Serious: Yes (Death, Other)
  Sender: FDA-Public Use
  Company Number: US-ASTRAZENECA-2020SE18036

PATIENT
  Age: 30448 Day
  Sex: Female
  Weight: 123.8 kg

DRUGS (40)
  1. NEXIUM [Suspect]
     Active Substance: ESOMEPRAZOLE MAGNESIUM
     Indication: GASTROOESOPHAGEAL REFLUX DISEASE
     Route: 048
     Dates: start: 200609, end: 201703
  2. HYDROCOD [Concomitant]
  3. ACTOS [Concomitant]
     Active Substance: PIOGLITAZONE HYDROCHLORIDE
  4. WELCHOL [Concomitant]
     Active Substance: COLESEVELAM HYDROCHLORIDE
  5. LACTULOSE. [Concomitant]
     Active Substance: LACTULOSE
  6. NEXIUM [Suspect]
     Active Substance: ESOMEPRAZOLE MAGNESIUM
     Indication: GASTROOESOPHAGEAL REFLUX DISEASE
     Route: 048
     Dates: start: 20080206
  7. GABAPENTIN. [Concomitant]
     Active Substance: GABAPENTIN
  8. LEVOTHYROXINE. [Concomitant]
     Active Substance: LEVOTHYROXINE
  9. PREDNISOLONE. [Concomitant]
     Active Substance: PREDNISOLONE
  10. ONGLYZA [Concomitant]
     Active Substance: SAXAGLIPTIN HYDROCHLORIDE
  11. ALLOPURINOL. [Concomitant]
     Active Substance: ALLOPURINOL
  12. NEXIUM [Suspect]
     Active Substance: ESOMEPRAZOLE MAGNESIUM
     Indication: GASTROOESOPHAGEAL REFLUX DISEASE
     Route: 048
     Dates: start: 200607, end: 201606
  13. FUROSEMIDE. [Concomitant]
     Active Substance: FUROSEMIDE
  14. ZETIA [Concomitant]
     Active Substance: EZETIMIBE
  15. ACIPHEX [Concomitant]
     Active Substance: RABEPRAZOLE SODIUM
  16. LISINOPRIL. [Concomitant]
     Active Substance: LISINOPRIL
  17. SINGULAIR [Concomitant]
     Active Substance: MONTELUKAST SODIUM
  18. NEVANAC [Concomitant]
     Active Substance: NEPAFENAC
  19. WARFARIN [Concomitant]
     Active Substance: WARFARIN
  20. NEXIUM [Suspect]
     Active Substance: ESOMEPRAZOLE MAGNESIUM
     Indication: GASTROOESOPHAGEAL REFLUX DISEASE
     Route: 048
     Dates: start: 20130515
  21. LEVOTHYROXINE. [Concomitant]
     Active Substance: LEVOTHYROXINE
  22. GABAPENTIN. [Concomitant]
     Active Substance: GABAPENTIN
  23. OFLOXACIN. [Concomitant]
     Active Substance: OFLOXACIN
  24. METOLAZONE. [Concomitant]
     Active Substance: METOLAZONE
  25. MAG OXIDE [Concomitant]
     Active Substance: MAGNESIUM OXIDE
  26. CIPROFLOXACIN. [Concomitant]
     Active Substance: CIPROFLOXACIN
  27. SPIRONOLACTONE. [Concomitant]
     Active Substance: SPIRONOLACTONE
  28. NIFEDIPINE. [Concomitant]
     Active Substance: NIFEDIPINE
  29. TRILIPIX [Concomitant]
     Active Substance: FENOFIBRIC ACID
  30. LOTREL [Concomitant]
     Active Substance: AMLODIPINE BESYLATE\BENAZEPRIL HYDROCHLORIDE
  31. LORATADINE. [Concomitant]
     Active Substance: LORATADINE
  32. AZITHROMYCIN ANHYDROUS. [Concomitant]
     Active Substance: AZITHROMYCIN ANHYDROUS
  33. CALCIUM ACETATE. [Concomitant]
     Active Substance: CALCIUM ACETATE
  34. TRADJENTA [Concomitant]
     Active Substance: LINAGLIPTIN
  35. HYDROCODONE?ACETAMINOPHEN [Concomitant]
     Active Substance: ACETAMINOPHEN\HYDROCODONE
  36. LETAIRIS [Concomitant]
     Active Substance: AMBRISENTAN
  37. CARVEDILOL. [Concomitant]
     Active Substance: CARVEDILOL
  38. VIGAMOX [Concomitant]
     Active Substance: MOXIFLOXACIN HYDROCHLORIDE
  39. METOPROLOL TARTRATE. [Concomitant]
     Active Substance: METOPROLOL TARTRATE
  40. VENTOLIN [Concomitant]
     Active Substance: ALBUTEROL SULFATE

REACTIONS (5)
  - Acute kidney injury [Unknown]
  - Tricuspid valve incompetence [Fatal]
  - Cardio-respiratory arrest [Fatal]
  - Left ventricular failure [Fatal]
  - Chronic kidney disease [Unknown]

NARRATIVE: CASE EVENT DATE: 20130219
